FAERS Safety Report 4931665-3 (Version None)
Quarter: 2006Q1

REPORT INFORMATION
  Report Type: 
  Country: None (occurrence: None)
  Receive Date: 20060303
  Receipt Date: 20051220
  Transmission Date: 20060701
  Serious: No
  Sender: FDA-Public Use
  Company Number: US-BRISTOL-MYERS SQUIBB COMPANY-13223953

PATIENT

DRUGS (1)
  1. ERBITUX [Suspect]

REACTIONS (3)
  - DYSPNOEA [None]
  - HYPOTENSION [None]
  - VOMITING [None]
